FAERS Safety Report 8269978-2 (Version None)
Quarter: 2012Q2

REPORT INFORMATION
  Report Type: 
  Country: None (occurrence: None)
  Receive Date: 20120410
  Receipt Date: 20120403
  Transmission Date: 20120825
  Serious: Yes (Other)
  Sender: FDA-Public Use
  Company Number: JP-JNJFOC-20111203559

PATIENT
  Age: 5 Decade
  Sex: Male

DRUGS (7)
  1. ZOSYN [Concomitant]
     Route: 042
     Dates: start: 20111116, end: 20111212
  2. ALPROSTADIL [Concomitant]
     Route: 042
     Dates: start: 20111115, end: 20111126
  3. PRAVASTATIN SODIUM [Concomitant]
     Route: 048
  4. ASPIRIN [Concomitant]
     Route: 048
  5. LANSOPRAZOLE [Suspect]
     Indication: PRODUCT USED FOR UNKNOWN INDICATION
     Route: 048
  6. FENTANYL-100 [Suspect]
     Indication: PERIPHERAL ARTERIAL OCCLUSIVE DISEASE
     Route: 062
     Dates: start: 20111118, end: 20111205
  7. FENTANYL-100 [Suspect]
     Indication: PAIN
     Route: 062
     Dates: start: 20111118, end: 20111205

REACTIONS (1)
  - NEUTROPENIA [None]
